FAERS Safety Report 14482012 (Version 1)
Quarter: 2018Q1

REPORT INFORMATION
  Report Type: Spontaneous
  Country: IT (occurrence: IT)
  Receive Date: 20180202
  Receipt Date: 20180202
  Transmission Date: 20180509
  Serious: Yes (Other)
  Sender: FDA-Public Use
  Company Number: IT-TEVA-2018-IT-850267

PATIENT
  Sex: Female
  Weight: 45 kg

DRUGS (3)
  1. ABILIFY [Suspect]
     Active Substance: ARIPIPRAZOLE
     Indication: ABNORMAL BEHAVIOUR
     Dosage: 5 MG, QD
     Route: 048
     Dates: start: 20130617, end: 20160217
  2. ZOLOFT [Suspect]
     Active Substance: SERTRALINE HYDROCHLORIDE
     Indication: OBSESSIVE-COMPULSIVE DISORDER
     Dosage: 50 MG, QD
     Route: 048
     Dates: start: 20130926, end: 20160217
  3. SERTRALINE [Suspect]
     Active Substance: SERTRALINE HYDROCHLORIDE
     Indication: OBSESSIVE-COMPULSIVE DISORDER
     Dosage: 50 MG, QD
     Route: 048
     Dates: start: 20130926, end: 20160217

REACTIONS (4)
  - Electrocardiogram repolarisation abnormality [Not Recovered/Not Resolved]
  - Off label use [Unknown]
  - Sinus bradycardia [Not Recovered/Not Resolved]
  - Electrocardiogram QT prolonged [Not Recovered/Not Resolved]

NARRATIVE: CASE EVENT DATE: 20130617
